FAERS Safety Report 10956568 (Version 1)
Quarter: 2015Q1

REPORT INFORMATION
  Report Type: Spontaneous
  Country: IT (occurrence: IT)
  Receive Date: 20150326
  Receipt Date: 20150326
  Transmission Date: 20150721
  Serious: Yes (Hospitalization)
  Sender: FDA-Public Use
  Company Number: IT-FRI-1000075426

PATIENT
  Age: 71 Year
  Sex: Female

DRUGS (5)
  1. ZYPREXA [Concomitant]
     Active Substance: OLANZAPINE
  2. NEBIVOLOL [Suspect]
     Active Substance: NEBIVOLOL
     Dosage: 3 DF
     Route: 048
     Dates: start: 20150316, end: 20150316
  3. TAVOR [Suspect]
     Active Substance: LORAZEPAM
     Dosage: 2.5 MG
     Route: 065
  4. NEBIVOLOL [Suspect]
     Active Substance: NEBIVOLOL
     Dosage: 10 MG
     Route: 048
  5. TAVOR [Suspect]
     Active Substance: LORAZEPAM
     Dosage: 50 MG
     Route: 065
     Dates: start: 20150316, end: 20150316

REACTIONS (2)
  - Drug abuse [Recovered/Resolved]
  - Hypoxia [Recovered/Resolved]

NARRATIVE: CASE EVENT DATE: 20150316
